FAERS Safety Report 7220926-3 (Version None)
Quarter: 2011Q1

REPORT INFORMATION
  Report Type: 
  Country: None (occurrence: None)
  Receive Date: 20110112
  Receipt Date: 20110103
  Transmission Date: 20110831
  Serious: Yes (Hospitalization)
  Sender: FDA-Public Use
  Company Number: US-ELI_LILLY_AND_COMPANY-US201009005117

PATIENT
  Sex: Female

DRUGS (2)
  1. FORTEO [Suspect]
     Indication: OSTEOPOROSIS
     Dosage: 20 UG, DAILY (1/D)
     Dates: start: 20100915
  2. FORTEO [Suspect]
     Dosage: 20 UG, DAILY (1/D)

REACTIONS (4)
  - PYREXIA [None]
  - CELLULITIS [None]
  - INJECTION SITE HAEMATOMA [None]
  - STAPHYLOCOCCAL SKIN INFECTION [None]
